FAERS Safety Report 18865499 (Version 14)
Quarter: 2021Q2

REPORT INFORMATION
  Report Type: Report from Study
  Country: DE (occurrence: DE)
  Receive Date: 20210208
  Receipt Date: 20210427
  Transmission Date: 20210717
  Serious: Yes (Death, Hospitalization)
  Sender: FDA-Public Use
  Company Number: DE-EISAI MEDICAL RESEARCH-EC-2021-087424

PATIENT
  Age: 81 Year
  Sex: Female
  Weight: 61 kg

DRUGS (12)
  1. NOVAMINSULFON [Concomitant]
     Active Substance: METAMIZOLE
     Dates: start: 20201208
  2. AMLODIPINE [Concomitant]
     Active Substance: AMLODIPINE BESYLATE
     Dates: start: 20201230, end: 20210205
  3. NOVALGIN [Concomitant]
     Dates: start: 20201112
  4. L?THYROXIN [Concomitant]
     Active Substance: LEVOTHYROXINE SODIUM
     Dates: start: 20201230, end: 20210205
  5. PEMBROLIZUMAB. [Suspect]
     Active Substance: PEMBROLIZUMAB
     Route: 041
     Dates: start: 20210119, end: 20210119
  6. PREGABALIN. [Concomitant]
     Active Substance: PREGABALIN
     Dates: start: 20201208
  7. PEMBROLIZUMAB. [Suspect]
     Active Substance: PEMBROLIZUMAB
     Indication: ENDOMETRIAL CANCER
     Route: 041
     Dates: start: 20201210, end: 20201229
  8. PALLADON [Concomitant]
     Active Substance: HYDROMORPHONE
     Dates: start: 20201208
  9. LENVATINIB [Suspect]
     Active Substance: LENVATINIB
     Indication: ENDOMETRIAL CANCER
     Route: 048
     Dates: start: 20201210, end: 20210129
  10. TELMISARTAN. [Concomitant]
     Active Substance: TELMISARTAN
     Dates: start: 20210104, end: 20210205
  11. HEPARIN [Suspect]
     Active Substance: HEPARIN SODIUM
     Indication: PORTAL VEIN THROMBOSIS
     Dosage: CONTINUOUS
     Route: 041
     Dates: start: 20210204, end: 20210205
  12. CITALOPRAM [Concomitant]
     Active Substance: CITALOPRAM HYDROBROMIDE
     Dates: start: 20201112

REACTIONS (1)
  - Cerebral haemorrhage [Fatal]

NARRATIVE: CASE EVENT DATE: 20210128
